FAERS Safety Report 13088088 (Version 3)
Quarter: 2017Q1

REPORT INFORMATION
  Report Type: Spontaneous
  Country: BE (occurrence: BE)
  Receive Date: 20170105
  Receipt Date: 20170203
  Transmission Date: 20170428
  Serious: Yes (Death, Disabling, Other)
  Sender: FDA-Public Use
  Company Number: BE-UCBSA-2017000245

PATIENT
  Sex: Female

DRUGS (54)
  1. KEPPRA [Suspect]
     Active Substance: LEVETIRACETAM
     Dosage: 2X1000MG
  2. KEPPRA [Suspect]
     Active Substance: LEVETIRACETAM
     Indication: SEIZURE
     Dosage: 2X1000 MG
     Route: 042
     Dates: start: 20161218
  3. PHENOBARBITAL. [Suspect]
     Active Substance: PHENOBARBITAL
     Dosage: 1X75MG
     Dates: start: 20161219
  4. DIPHANTOINE [Concomitant]
     Active Substance: PHENYTOIN
     Dosage: 200 MG, ONCE DAILY (QD) (MORNING)
     Dates: start: 20161224
  5. DEPAKINE [Concomitant]
     Active Substance: VALPROATE SODIUM
     Indication: PRODUCT USED FOR UNKNOWN INDICATION
     Dosage: UNK
  6. MIDAZOLAM [Concomitant]
     Active Substance: MIDAZOLAM HYDROCHLORIDE
     Indication: PRODUCT USED FOR UNKNOWN INDICATION
     Dosage: UNK
     Route: 042
     Dates: start: 20161228
  7. PENTOTHAL [Concomitant]
     Active Substance: THIOPENTAL SODIUM
     Indication: PRODUCT USED FOR UNKNOWN INDICATION
     Dosage: UNK
     Dates: start: 201701, end: 20170106
  8. PROPOFOL. [Concomitant]
     Active Substance: PROPOFOL
     Indication: PRODUCT USED FOR UNKNOWN INDICATION
     Dosage: UNK
     Dates: start: 201612, end: 20170103
  9. KEPPRA [Suspect]
     Active Substance: LEVETIRACETAM
     Indication: SEIZURE
     Dosage: UNK
     Dates: start: 200210
  10. KEPPRA [Suspect]
     Active Substance: LEVETIRACETAM
     Dosage: 2X1250MG
     Route: 042
     Dates: start: 20161227
  11. VIMPAT [Suspect]
     Active Substance: LACOSAMIDE
     Dosage: 200 MG, ONCE DAILY (QD)
     Route: 042
     Dates: start: 20161223, end: 20161223
  12. VIMPAT [Suspect]
     Active Substance: LACOSAMIDE
     Dosage: 400 MG, ONCE DAILY (QD) (2X200 MG IV IN THE EVENING)
     Route: 042
     Dates: start: 20161224, end: 20161224
  13. VIMPAT [Suspect]
     Active Substance: LACOSAMIDE
     Dosage: 2 X 200 MG
  14. DIPHANTOINE [Concomitant]
     Active Substance: PHENYTOIN
     Dosage: 250 MG, ONCE DAILY (QD)
     Route: 042
     Dates: start: 20161224
  15. MIDAZOLAM [Concomitant]
     Active Substance: MIDAZOLAM HYDROCHLORIDE
     Indication: PRODUCT USED FOR UNKNOWN INDICATION
     Dosage: 2X5MG
     Route: 045
     Dates: start: 20161217, end: 201612
  16. VENTOLIN [Concomitant]
     Active Substance: ALBUTEROL SULFATE
     Indication: PRODUCT USED FOR UNKNOWN INDICATION
     Dosage: UNK, ONCE DAILY (QD)
  17. VITAMIN B [Concomitant]
     Active Substance: VITAMIN B
     Indication: PRODUCT USED FOR UNKNOWN INDICATION
  18. KEPPRA [Suspect]
     Active Substance: LEVETIRACETAM
     Dosage: 1X1500 MG
  19. VIMPAT [Suspect]
     Active Substance: LACOSAMIDE
     Dosage: UNK
     Dates: start: 20161224
  20. ALCOHOL. [Suspect]
     Active Substance: ALCOHOL
     Indication: PRODUCT USED FOR UNKNOWN INDICATION
     Dosage: UNK
  21. PHENOBARBITAL. [Suspect]
     Active Substance: PHENOBARBITAL
     Indication: SEIZURE
     Dosage: UNK
  22. DIPHANTOINE [Concomitant]
     Active Substance: PHENYTOIN
     Indication: PRODUCT USED FOR UNKNOWN INDICATION
     Dosage: 2 TIMES A DAY
  23. DIPHANTOINE [Concomitant]
     Active Substance: PHENYTOIN
     Indication: PRODUCT USED FOR UNKNOWN INDICATION
     Dosage: 500 MG
     Route: 042
     Dates: start: 20161217, end: 20161217
  24. FOLIC ACID. [Concomitant]
     Active Substance: FOLIC ACID
     Indication: PRODUCT USED FOR UNKNOWN INDICATION
  25. PHENOBARBITAL. [Concomitant]
     Active Substance: PHENOBARBITAL
     Dosage: 100 MG MS
     Dates: start: 20161227
  26. DEPAKINE [Concomitant]
     Active Substance: VALPROATE SODIUM
     Indication: PRODUCT USED FOR UNKNOWN INDICATION
     Dosage: 1500 MG IV VIA DVC
     Dates: start: 20161220, end: 20161221
  27. KEPPRA [Suspect]
     Active Substance: LEVETIRACETAM
     Dosage: 2X1250 MG
     Dates: start: 20161220
  28. PHENYTOIN. [Suspect]
     Active Substance: PHENYTOIN
     Indication: SEIZURE
     Dosage: UNK
  29. PHENYTOIN. [Suspect]
     Active Substance: PHENYTOIN
     Dosage: 10
     Dates: start: 20161218, end: 20161218
  30. PHENOBARBITAL. [Suspect]
     Active Substance: PHENOBARBITAL
     Dosage: 100 MG
     Dates: start: 201612
  31. GARDENAL [Concomitant]
     Active Substance: PHENOBARBITAL
     Indication: PRODUCT USED FOR UNKNOWN INDICATION
     Dosage: 100 MG
  32. MIDAZOLAM [Concomitant]
     Active Substance: MIDAZOLAM HYDROCHLORIDE
     Dosage: 5MG INTRANASAL (2.5MG X2 PER NOSTRIL)
     Dates: start: 20161220
  33. L-THYROXINE [Concomitant]
     Active Substance: LEVOTHYROXINE
     Indication: HYPOTHYROIDISM
     Dosage: UNK
     Dates: start: 20161227
  34. MAGNESIUM [Concomitant]
     Active Substance: MAGNESIUM
     Indication: PRODUCT USED FOR UNKNOWN INDICATION
     Dosage: UNK
     Dates: start: 201701
  35. VIMPAT [Suspect]
     Active Substance: LACOSAMIDE
     Dosage: UNK
     Route: 042
     Dates: start: 20161221, end: 20161221
  36. LAMOTRIGINE. [Concomitant]
     Active Substance: LAMOTRIGINE
     Indication: PRODUCT USED FOR UNKNOWN INDICATION
  37. VIMPAT [Suspect]
     Active Substance: LACOSAMIDE
     Indication: SEIZURE
     Dosage: 200 MG
     Route: 042
     Dates: start: 20161222, end: 20161222
  38. VIMPAT [Suspect]
     Active Substance: LACOSAMIDE
     Indication: SEIZURE
     Dosage: 200 MG, ONCE DAILY (QD) (EVENING)
     Route: 048
     Dates: start: 20161223, end: 20161223
  39. PHENYTOIN. [Suspect]
     Active Substance: PHENYTOIN
     Dosage: 15.9
     Dates: start: 20161217, end: 20161217
  40. PHENYTOIN. [Suspect]
     Active Substance: PHENYTOIN
     Dosage: 2X150MG
     Dates: start: 20161219
  41. DIPHANTOINE [Concomitant]
     Active Substance: PHENYTOIN
     Dosage: 2X100 MG
     Dates: start: 20170101
  42. GARDENAL [Concomitant]
     Active Substance: PHENOBARBITAL
     Dosage: ONCE 2/100MG
     Dates: start: 20161227
  43. GARDENAL [Concomitant]
     Active Substance: PHENOBARBITAL
     Dosage: 150 MG, ONCE DAILY (QD)
  44. PHENOBARBITAL. [Concomitant]
     Active Substance: PHENOBARBITAL
     Indication: PRODUCT USED FOR UNKNOWN INDICATION
     Dosage: 75 MG VIA MS
     Dates: start: 20161218
  45. DIPHANTOINE [Concomitant]
     Active Substance: PHENYTOIN
     Dosage: 100 + 150 MG
  46. DIPHANTOINE [Concomitant]
     Active Substance: PHENYTOIN
     Dosage: 300 MG
     Route: 042
     Dates: start: 20161218
  47. CARBAMAZEPINE. [Concomitant]
     Active Substance: CARBAMAZEPINE
     Indication: PRODUCT USED FOR UNKNOWN INDICATION
  48. TEGRETOL [Concomitant]
     Active Substance: CARBAMAZEPINE
     Indication: PRODUCT USED FOR UNKNOWN INDICATION
     Dosage: UNK
  49. KEPPRA [Suspect]
     Active Substance: LEVETIRACETAM
     Dosage: 2X1000 MG
     Dates: start: 20161227
  50. VIMPAT [Suspect]
     Active Substance: LACOSAMIDE
     Dosage: 2X200 MG
     Route: 042
     Dates: start: 20161227
  51. DIPHANTOINE [Concomitant]
     Active Substance: PHENYTOIN
     Dosage: 2X250 MG
     Dates: start: 20161227
  52. DIPHANTOINE [Concomitant]
     Active Substance: PHENYTOIN
     Dosage: 3X250 MG
     Route: 042
     Dates: start: 20161227
  53. TEMESTA [Concomitant]
     Active Substance: LORAZEPAM
     Indication: PRODUCT USED FOR UNKNOWN INDICATION
     Dosage: 2X2MG
     Dates: start: 20161224
  54. DIPRIVAN [Concomitant]
     Active Substance: PROPOFOL
     Indication: PRODUCT USED FOR UNKNOWN INDICATION
     Dosage: UNK

REACTIONS (26)
  - Ankle fracture [Unknown]
  - Hypertension [Unknown]
  - Lymphangitis [Unknown]
  - Nail disorder [Unknown]
  - Alcohol abuse [Unknown]
  - Complex partial seizures [Unknown]
  - Hypotension [Fatal]
  - Lymphoedema [Unknown]
  - Obstructive airways disorder [Unknown]
  - Status epilepticus [Not Recovered/Not Resolved]
  - Erysipelas [Unknown]
  - Coma [Unknown]
  - Electrocardiogram ST segment elevation [Unknown]
  - Epilepsy [Unknown]
  - Muscle tightness [Unknown]
  - Respiratory depression [Unknown]
  - Off label use [Unknown]
  - Hypercholesterolaemia [Unknown]
  - Gait disturbance [Unknown]
  - Hypothyroidism [Unknown]
  - Hypernatraemia [Unknown]
  - Somnolence [Unknown]
  - Hyperammonaemia [Unknown]
  - Poisoning [Unknown]
  - Metabolic disorder [Unknown]
  - Arrhythmia [Fatal]

NARRATIVE: CASE EVENT DATE: 201208
